FAERS Safety Report 9395886 (Version 2)
Quarter: 2013Q4

REPORT INFORMATION
  Report Type: Spontaneous
  Country: GB (occurrence: GB)
  Receive Date: 20130711
  Receipt Date: 20131230
  Transmission Date: 20140711
  Serious: Yes (Life-Threatening, Hospitalization, Other)
  Sender: FDA-Public Use
  Company Number: GB-GLAXOSMITHKLINE-B0905605A

PATIENT
  Age: 65 Year
  Sex: Male
  Weight: 82 kg

DRUGS (5)
  1. ELTROMBOPAG [Suspect]
     Indication: IMMUNE THROMBOCYTOPENIC PURPURA
     Route: 048
     Dates: start: 20130402, end: 20130602
  2. METFORMIN [Concomitant]
     Indication: DIABETES MELLITUS
     Dosage: 1G TWICE PER DAY
     Route: 048
  3. GLICAZIDE [Concomitant]
     Indication: DIABETES MELLITUS
     Dosage: 80MG TWICE PER DAY
     Route: 048
  4. NOVOMIX [Concomitant]
     Indication: DIABETES MELLITUS
     Dosage: 36U PER DAY
     Route: 058
  5. FILGRASTIM [Concomitant]
     Indication: NEUTROPENIA
     Dosage: 300MCG WEEKLY
     Route: 058

REACTIONS (5)
  - Cerebral haemorrhage [Recovered/Resolved]
  - Neutropenic sepsis [Recovered/Resolved]
  - Aphasia [Recovered/Resolved]
  - Petechiae [Recovered/Resolved]
  - Drug ineffective [Unknown]
